FAERS Safety Report 4720864-1 (Version None)
Quarter: 2005Q3

REPORT INFORMATION
  Report Type: 
  Country: None (occurrence: None)
  Receive Date: 20050721
  Receipt Date: 20050713
  Transmission Date: 20060218
  Serious: Yes (Death, Life-Threatening)
  Sender: FDA-Public Use
  Company Number: FR-ABBOTT-05P-056-0305927-00

PATIENT
  Age: 21 Year
  Sex: Female

DRUGS (6)
  1. SEVORANE LIQUID FOR INHALATION [Suspect]
     Indication: ANAESTHESIA
     Route: 055
     Dates: start: 20050613, end: 20050613
  2. KETAMINE [Suspect]
     Indication: GENERAL ANAESTHESIA
     Route: 042
     Dates: start: 20050613, end: 20050613
  3. PROPOFOL [Suspect]
     Indication: GENERAL ANAESTHESIA
     Route: 042
     Dates: start: 20050613, end: 20050613
  4. MIDAZOLAM HCL [Suspect]
     Indication: GENERAL ANAESTHESIA
     Route: 042
     Dates: start: 20050613, end: 20050613
  5. NEFOPAM [Suspect]
     Indication: GENERAL ANAESTHESIA
     Route: 042
     Dates: start: 20050613, end: 20050613
  6. SUFENTANIL [Suspect]
     Indication: GENERAL ANAESTHESIA
     Route: 042
     Dates: start: 20050613, end: 20050613

REACTIONS (7)
  - ACUTE PULMONARY OEDEMA [None]
  - ANAPHYLACTIC SHOCK [None]
  - CARDIOGENIC SHOCK [None]
  - CIRCULATORY COLLAPSE [None]
  - DISSEMINATED INTRAVASCULAR COAGULATION [None]
  - PHAEOCHROMOCYTOMA [None]
  - PULMONARY OEDEMA [None]
